FAERS Safety Report 23500882 (Version 2)
Quarter: 2024Q1

REPORT INFORMATION
  Report Type: Spontaneous
  Country: US (occurrence: US)
  Receive Date: 20240208
  Receipt Date: 20240327
  Transmission Date: 20240410
  Serious: No
  Sender: FDA-Public Use
  Company Number: US-ABBVIE-5619338

PATIENT
  Sex: Female
  Weight: 86.182 kg

DRUGS (6)
  1. HUMIRA [Suspect]
     Active Substance: ADALIMUMAB
     Indication: Product used for unknown indication
     Route: 058
     Dates: start: 20231113, end: 20231113
  2. HUMIRA [Suspect]
     Active Substance: ADALIMUMAB
     Route: 058
     Dates: start: 20231218, end: 20240101
  3. HUMIRA [Suspect]
     Active Substance: ADALIMUMAB
     Route: 058
     Dates: start: 20231030, end: 20231030
  4. HUMIRA [Suspect]
     Active Substance: ADALIMUMAB
     Dosage: LAST ADMIN DATE: DEC 2023
     Route: 058
     Dates: start: 20231204
  5. HUMIRA [Suspect]
     Active Substance: ADALIMUMAB
     Route: 058
     Dates: start: 20231016, end: 20231016
  6. Covid-19 Vaccine [Concomitant]
     Indication: COVID-19 immunisation
     Route: 030
     Dates: start: 20231103, end: 20231103

REACTIONS (14)
  - Diarrhoea [Recovered/Resolved]
  - Adverse drug reaction [Recovered/Resolved]
  - Dehydration [Unknown]
  - Bowel movement irregularity [Recovered/Resolved]
  - Colitis [Not Recovered/Not Resolved]
  - Gastrointestinal tract irritation [Unknown]
  - Tooth abscess [Recovered/Resolved]
  - Vomiting [Recovered/Resolved]
  - Incontinence [Unknown]
  - Illness [Unknown]
  - Asthenia [Not Recovered/Not Resolved]
  - Gastrointestinal sounds abnormal [Unknown]
  - Toothache [Recovered/Resolved]
  - Diarrhoea [Unknown]

NARRATIVE: CASE EVENT DATE: 20230101
